FAERS Safety Report 18756193 (Version 1)
Quarter: 2021Q1

REPORT INFORMATION
  Report Type: Spontaneous
  Country: US (occurrence: US)
  Receive Date: 20210119
  Receipt Date: 20210119
  Transmission Date: 20210419
  Serious: Yes (Death)
  Sender: FDA-Public Use
  Company Number: US-ROCHE-2752220

PATIENT
  Age: 77 Year
  Sex: Female

DRUGS (7)
  1. ROPINIROLE. [Concomitant]
     Active Substance: ROPINIROLE
  2. TYLENOL [Concomitant]
     Active Substance: ACETAMINOPHEN
  3. DULOXETINE. [Concomitant]
     Active Substance: DULOXETINE
  4. AZITHROMYCIN ANHYDROUS. [Concomitant]
     Active Substance: AZITHROMYCIN ANHYDROUS
  5. TRAMADOL. [Concomitant]
     Active Substance: TRAMADOL
  6. ESBRIET [Suspect]
     Active Substance: PIRFENIDONE
     Indication: IDIOPATHIC PULMONARY FIBROSIS
     Route: 048
     Dates: start: 20201215, end: 202101
  7. BUDESONIDE. [Concomitant]
     Active Substance: BUDESONIDE

REACTIONS (1)
  - Death [Fatal]

NARRATIVE: CASE EVENT DATE: 20210104
